FAERS Safety Report 18146331 (Version 2)
Quarter: 2020Q3

REPORT INFORMATION
  Report Type: Report from Study
  Country: None (occurrence: CO)
  Receive Date: 20200813
  Receipt Date: 20200903
  Transmission Date: 20201103
  Serious: Yes (Hospitalization, Other)
  Sender: FDA-Public Use
  Company Number: CO-ABBVIE-20K-036-3523327-00

PATIENT
  Age: 36 Year
  Sex: Female
  Weight: 40 kg

DRUGS (2)
  1. ZEMPLAR [Suspect]
     Active Substance: PARICALCITOL
     Indication: CHRONIC KIDNEY DISEASE
  2. ZEMPLAR [Suspect]
     Active Substance: PARICALCITOL
     Indication: HYPERPARATHYROIDISM SECONDARY
     Dosage: POST DIALYSIS
     Route: 042
     Dates: start: 20140721, end: 20200622

REACTIONS (5)
  - Drug hypersensitivity [Unknown]
  - Thyroid disorder [Recovering/Resolving]
  - Blood calcium decreased [Recovering/Resolving]
  - Anxiety [Unknown]
  - Feeling of despair [Unknown]

NARRATIVE: CASE EVENT DATE: 20200803
